FAERS Safety Report 9614597 (Version 2)
Quarter: 2013Q4

REPORT INFORMATION
  Report Type: Spontaneous
  Country: BR (occurrence: BR)
  Receive Date: 20131011
  Receipt Date: 20131011
  Transmission Date: 20140711
  Serious: Yes (Other)
  Sender: FDA-Public Use
  Company Number: BR-ASTRAZENECA-2013SE66526

PATIENT
  Age: 61 Year
  Sex: Female
  Weight: 78 kg

DRUGS (8)
  1. BRILINTA [Suspect]
     Indication: THROMBOSIS PROPHYLAXIS
     Route: 048
     Dates: start: 201301, end: 20130819
  2. BRILINTA [Suspect]
     Indication: THROMBOSIS PROPHYLAXIS
     Route: 048
     Dates: start: 20130823
  3. SELOZOK [Suspect]
     Indication: HYPERTENSION
     Route: 048
     Dates: start: 201301
  4. ROXFLAN [Suspect]
     Indication: HYPERTENSION
     Route: 065
     Dates: start: 2008, end: 201302
  5. SIMVASTATIN [Concomitant]
     Indication: BLOOD CHOLESTEROL INCREASED
     Dates: start: 201301
  6. DIOVAN [Concomitant]
     Indication: HYPERTENSION
     Dates: start: 201302
  7. SOMALGIN CARDIO [Concomitant]
     Indication: BLOOD DISORDER
     Dates: start: 201301
  8. DIOVAN TRIPLO [Concomitant]
     Indication: HYPERTENSION
     Dosage: 160/25/5 MG
     Dates: start: 201302

REACTIONS (7)
  - Hypertension [Recovered/Resolved]
  - Chest pain [Not Recovered/Not Resolved]
  - Malaise [Recovered/Resolved]
  - Asthenia [Recovered/Resolved]
  - Local swelling [Not Recovered/Not Resolved]
  - Drug dose omission [Recovered/Resolved]
  - Drug ineffective [Unknown]
